FAERS Safety Report 4964023-6 (Version None)
Quarter: 2006Q1

REPORT INFORMATION
  Report Type: 
  Country: None (occurrence: None)
  Receive Date: 20060330
  Receipt Date: 20060322
  Transmission Date: 20060701
  Serious: Yes (Disabling, Other)
  Sender: FDA-Public Use
  Company Number: 2006041454

PATIENT
  Sex: Female
  Weight: 108.8633 kg

DRUGS (8)
  1. CELEBREX [Suspect]
     Indication: PAIN
     Dosage: 400 MG (200 MG, 2 IN 1 D) ORAL
     Route: 048
     Dates: start: 20000101
  2. NEURONTIN [Suspect]
     Indication: PAIN
     Dosage: 600 MG (600 MG, 1 IN 1 D) ORAL
     Route: 048
  3. VIOXX [Suspect]
     Indication: PAIN
  4. POTASSIUM [Concomitant]
  5. VERAPAMIL [Concomitant]
  6. LISINOPRIL [Concomitant]
  7. PROZAC [Concomitant]
  8. HYDROCHLOROTHIAZIDE [Concomitant]

REACTIONS (7)
  - DRUG INEFFECTIVE [None]
  - GAIT DISTURBANCE [None]
  - MUSCULOSKELETAL STIFFNESS [None]
  - PARKINSON'S DISEASE [None]
  - SPINAL COLUMN STENOSIS [None]
  - TREMOR [None]
  - URINARY INCONTINENCE [None]
